FAERS Safety Report 11746723 (Version 1)
Quarter: 2015Q4

REPORT INFORMATION
  Report Type: Spontaneous
  Country: GB (occurrence: GB)
  Receive Date: 20151117
  Receipt Date: 20151117
  Transmission Date: 20160304
  Serious: Yes (Other)
  Sender: FDA-Public Use
  Company Number: GB-TEVA-607431ACC

PATIENT
  Age: 70 Year
  Sex: Female
  Weight: 79 kg

DRUGS (9)
  1. LEVOTHYROXINE. [Concomitant]
     Active Substance: LEVOTHYROXINE
     Dosage: 1 DOSAGE FORMS DAILY;
     Dates: start: 20141222
  2. CLINDAMYCIN [Concomitant]
     Active Substance: CLINDAMYCIN\CLINDAMYCIN PHOSPHATE
     Dosage: 4 DOSAGE FORMS DAILY;
     Dates: start: 20151023
  3. FUROSEMIDE. [Concomitant]
     Active Substance: FUROSEMIDE
     Dosage: 1 DOSAGE FORMS DAILY; EACH MORNING; DAILY DOSE: 1 DF
     Dates: start: 20151009
  4. SERETIDE [Concomitant]
     Active Substance: FLUTICASONE FUROATE\SALMETEROL XINAFOATE
     Dosage: 4 DOSAGE FORMS DAILY;
     Route: 055
     Dates: start: 20150205
  5. AMOXICILLIN. [Suspect]
     Active Substance: AMOXICILLIN
     Dates: start: 20151026
  6. VENTOLIN [Concomitant]
     Active Substance: ALBUTEROL SULFATE
     Dosage: AS REQUIRED
     Route: 055
     Dates: start: 20141222
  7. FLUCLOXACILLIN [Concomitant]
     Active Substance: FLUCLOXACILLIN
     Dosage: 4 DOSAGE FORMS DAILY;
     Dates: start: 20151016, end: 20151023
  8. PHENELZINE [Concomitant]
     Active Substance: PHENELZINE
     Dosage: 5 DOSAGE FORMS DAILY;
     Dates: start: 20141222
  9. QUININE [Concomitant]
     Active Substance: QUININE
     Dosage: 1 DOSAGE FORMS DAILY; AT NIGHT; DAILY DOSE: 1DF
     Dates: start: 20141222

REACTIONS (1)
  - Dyspnoea [Recovered/Resolved]

NARRATIVE: CASE EVENT DATE: 20151026
